FAERS Safety Report 13059538 (Version 2)
Quarter: 2017Q3

REPORT INFORMATION
  Report Type: Report from Study
  Country: None (occurrence: BR)
  Receive Date: 20161223
  Receipt Date: 20170823
  Transmission Date: 20171127
  Serious: Yes (Other)
  Sender: FDA-Public Use
  Company Number: BR-ABBVIE-16P-020-1820572-00

PATIENT
  Sex: Female
  Weight: 60 kg

DRUGS (3)
  1. SYNTHROID [Suspect]
     Active Substance: LEVOTHYROXINE SODIUM
     Dosage: WITHOUT FASTING
     Route: 065
  2. SYNTHROID [Suspect]
     Active Substance: LEVOTHYROXINE SODIUM
     Dosage: STARTED TAKING SYNTHROID CORRECTLY
     Route: 065
  3. SYNTHROID [Suspect]
     Active Substance: LEVOTHYROXINE SODIUM
     Indication: HYPOTHYROIDISM
     Dosage: DAILY DOSE: 50 MCG IN MORNING IN FASTING
     Route: 048
     Dates: start: 2004

REACTIONS (6)
  - Inappropriate schedule of drug administration [Unknown]
  - Thyroid nodule removal [Recovered/Resolved]
  - Thyroidectomy [Unknown]
  - Thyroxine abnormal [Recovered/Resolved]
  - Thyroid function test abnormal [Recovered/Resolved]
  - Blood thyroid stimulating hormone abnormal [Recovered/Resolved]

NARRATIVE: CASE EVENT DATE: 2004
